FAERS Safety Report 7800164-3 (Version None)
Quarter: 2011Q4

REPORT INFORMATION
  Report Type: 
  Country: None (occurrence: None)
  Receive Date: 20111006
  Receipt Date: 20110930
  Transmission Date: 20120403
  Serious: Yes (Hospitalization, Disabling, Other)
  Sender: FDA-Public Use
  Company Number: US-MERCK-1109USA02145

PATIENT
  Age: 55 Year
  Sex: Female

DRUGS (5)
  1. FOSAMAX PLUS D [Suspect]
     Indication: OSTEOPENIA
     Route: 048
     Dates: start: 20050701, end: 20060701
  2. BONIVA [Suspect]
     Indication: OSTEOPENIA
     Route: 065
     Dates: start: 20060701, end: 20090501
  3. BONIVA [Suspect]
     Route: 065
     Dates: start: 20060101, end: 20090101
  4. BONIVA [Suspect]
     Indication: OSTEOPOROSIS
     Route: 065
     Dates: start: 20060701, end: 20090501
  5. BONIVA [Suspect]
     Route: 065
     Dates: start: 20060101, end: 20090101

REACTIONS (9)
  - DEVICE FAILURE [None]
  - TOOTH DISORDER [None]
  - ARTHRALGIA [None]
  - SLEEP DISORDER [None]
  - FEMUR FRACTURE [None]
  - BURNS THIRD DEGREE [None]
  - FRACTURE NONUNION [None]
  - NEURALGIA [None]
  - SPINAL OSTEOARTHRITIS [None]
